FAERS Safety Report 22297513 (Version 3)
Quarter: 2023Q2

REPORT INFORMATION
  Report Type: Spontaneous
  Country: JP (occurrence: JP)
  Receive Date: 20230509
  Receipt Date: 20230622
  Transmission Date: 20230721
  Serious: Yes (Hospitalization, Other)
  Sender: FDA-Public Use
  Company Number: JP-CHUGAI-2023016300

PATIENT
  Age: 78 Year
  Sex: Male
  Weight: 64.2 kg

DRUGS (9)
  1. TECENTRIQ [Suspect]
     Active Substance: ATEZOLIZUMAB
     Indication: Lung adenocarcinoma
     Dosage: 1200 MILLIGRAM, ONCE/5WEEKS
     Route: 041
     Dates: start: 20210629, end: 20210803
  2. TECENTRIQ [Suspect]
     Active Substance: ATEZOLIZUMAB
     Dosage: UNK
     Route: 041
     Dates: start: 20230511
  3. TECENTRIQ [Suspect]
     Active Substance: ATEZOLIZUMAB
     Dosage: 1200 MILLIGRAM
     Route: 041
     Dates: start: 20210831, end: 20220915
  4. AVASTIN [Suspect]
     Active Substance: BEVACIZUMAB
     Indication: Lung adenocarcinoma
     Dosage: 750 MILLIGRAM, SINGLE
     Route: 041
     Dates: start: 20210629, end: 20210629
  5. AVASTIN [Suspect]
     Active Substance: BEVACIZUMAB
     Dosage: 550 MILLIGRAM
     Route: 041
     Dates: start: 20210803, end: 20211012
  6. CARBOPLATIN [Concomitant]
     Active Substance: CARBOPLATIN
     Indication: Lung adenocarcinoma
     Dosage: UNK
     Route: 041
     Dates: start: 2021
  7. PACLITAXEL [Concomitant]
     Active Substance: PACLITAXEL
     Indication: Lung adenocarcinoma
     Dosage: UNK
     Route: 041
  8. ALIMTA [Concomitant]
     Active Substance: PEMETREXED DISODIUM
     Indication: Lung adenocarcinoma
     Dosage: UNK
     Route: 041
     Dates: start: 2021
  9. BEVACIZUMAB [Concomitant]
     Active Substance: BEVACIZUMAB
     Indication: Lung adenocarcinoma
     Dosage: 550 MILLIGRAM
     Route: 041
     Dates: start: 20211104, end: 20220623

REACTIONS (6)
  - Pleurisy [Recovered/Resolved]
  - Adrenal insufficiency [Recovered/Resolved]
  - Hypopituitarism [Recovered/Resolved]
  - Pyrexia [Recovered/Resolved]
  - Neutropenia [Recovered/Resolved]
  - Metastases to pleura [Unknown]

NARRATIVE: CASE EVENT DATE: 20210629
